FAERS Safety Report 8002848 (Version 5)
Quarter: 2012Q4

REPORT INFORMATION
  Report Type: Report from Study
  Country: DE (occurrence: DE)
  Receive Date: 20110622
  Receipt Date: 20121012
  Transmission Date: 20130627
  Serious: Yes (Death, Hospitalization, Other)
  Sender: FDA-Public Use
  Company Number: PHHY2011DE16705

PATIENT
  Sex: Male
  Weight: 82.09 kg

DRUGS (22)
  1. ICL670A [Suspect]
     Indication: MYELODYSPLASTIC SYNDROME
     Dosage: 500 mg, daily
     Route: 048
     Dates: start: 20100916, end: 20110303
  2. ASS [Concomitant]
     Dosage: 100 mg, DAILY
     Route: 048
     Dates: end: 20110328
  3. KALINOR RETARD [Concomitant]
     Dosage: 1800 mg, DAILY
     Route: 048
  4. ISCOVER [Concomitant]
     Dosage: 75 mg, Daily
     Route: 048
  5. TAMSULOSIN [Concomitant]
     Dosage: 0.4 mg, daily
     Route: 048
  6. TOREM [Concomitant]
     Dosage: 30 mg, daily
     Route: 048
     Dates: end: 20110327
  7. METOPROLOL [Concomitant]
     Dosage: 47.5 mg, daily
     Route: 048
  8. INSPRA [Concomitant]
     Dosage: 25 mg, daily
     Route: 048
     Dates: start: 20110327
  9. INSPRA [Concomitant]
     Dosage: 50 mg, daily
     Dates: start: 20110328
  10. PANTOZOL [Concomitant]
     Dosage: 20 mg, daily
     Route: 048
     Dates: start: 20120327
  11. PANTOZOL [Concomitant]
     Dosage: 40 mg,daily
     Dates: start: 20120328
  12. RAMIPRIL DURA PLUS [Concomitant]
     Dosage: 1.25 mg, daily
     Route: 048
  13. SIMVASTATIN [Concomitant]
     Dosage: 40 mg, daily
     Route: 048
     Dates: end: 20110327
  14. IBUPROFEN [Concomitant]
     Dosage: 3200 mg, daily
     Route: 048
     Dates: start: 20110327
  15. IBUPROFEN [Concomitant]
     Dosage: 800 mg, daily
     Route: 048
     Dates: start: 20110328
  16. IBUPROFEN [Concomitant]
     Dosage: 600 mg, UNK
     Route: 048
  17. ACC [Concomitant]
     Dosage: 400 mg, daily
     Route: 048
  18. MYOCHOLINE [Concomitant]
     Dosage: UNK
     Dates: end: 20110328
  19. LEVEMIR [Concomitant]
     Dosage: 20 IE/day
     Route: 058
     Dates: end: 20110327
  20. INSUMAN RAPID [Concomitant]
     Dosage: 6IE/day
     Route: 058
     Dates: end: 20110327
  21. SPIRIVA [Concomitant]
     Dosage: 1 DF, UNK
     Dates: start: 20110328
  22. SYMBICORT [Concomitant]
     Dosage: 160/4.5 2x daily
     Dates: start: 20110328

REACTIONS (9)
  - Acute myeloid leukaemia [Fatal]
  - General physical health deterioration [Recovered/Resolved]
  - Anaemia [Recovered/Resolved]
  - Thrombocytopenia [Recovered/Resolved]
  - Haemoglobin decreased [Recovered/Resolved]
  - Pneumonia [Recovered/Resolved]
  - Dyspnoea at rest [Recovered/Resolved]
  - Gout [Recovered/Resolved]
  - Cardiac failure [Recovered/Resolved]
